FAERS Safety Report 25830840 (Version 1)
Quarter: 2025Q3

REPORT INFORMATION
  Report Type: Spontaneous
  Country: CA (occurrence: CA)
  Receive Date: 20250922
  Receipt Date: 20250922
  Transmission Date: 20251021
  Serious: Yes (Life-Threatening, Hospitalization)
  Sender: MYLAN
  Company Number: CA-MYLANLABS-2025M1080316

PATIENT
  Age: 79 Year
  Sex: Male

DRUGS (52)
  1. LEVOTHYROXINE [Suspect]
     Active Substance: LEVOTHYROXINE
     Indication: Hypothyroidism
  2. LEVOTHYROXINE [Suspect]
     Active Substance: LEVOTHYROXINE
     Route: 065
  3. LEVOTHYROXINE [Suspect]
     Active Substance: LEVOTHYROXINE
     Route: 065
  4. LEVOTHYROXINE [Suspect]
     Active Substance: LEVOTHYROXINE
  5. SAIZEN [Suspect]
     Active Substance: SOMATROPIN
     Indication: Growth hormone deficiency
     Dosage: 0.2 MILLIGRAM, QW (1 EVERY 1 WEEKS)
  6. SAIZEN [Suspect]
     Active Substance: SOMATROPIN
     Dosage: 0.2 MILLIGRAM, QW (1 EVERY 1 WEEKS)
     Route: 058
  7. SAIZEN [Suspect]
     Active Substance: SOMATROPIN
     Dosage: 0.2 MILLIGRAM, QW (1 EVERY 1 WEEKS)
     Route: 058
  8. SAIZEN [Suspect]
     Active Substance: SOMATROPIN
     Dosage: 0.2 MILLIGRAM, QW (1 EVERY 1 WEEKS)
  9. AMLODIPINE [Concomitant]
     Active Substance: AMLODIPINE BESYLATE
     Indication: Hypertension
  10. AMLODIPINE [Concomitant]
     Active Substance: AMLODIPINE BESYLATE
     Route: 065
  11. AMLODIPINE [Concomitant]
     Active Substance: AMLODIPINE BESYLATE
     Route: 065
  12. AMLODIPINE [Concomitant]
     Active Substance: AMLODIPINE BESYLATE
  13. ATORVASTATIN [Concomitant]
     Active Substance: ATORVASTATIN
     Indication: Dyslipidaemia
  14. ATORVASTATIN [Concomitant]
     Active Substance: ATORVASTATIN
     Route: 048
  15. ATORVASTATIN [Concomitant]
     Active Substance: ATORVASTATIN
     Route: 048
  16. ATORVASTATIN [Concomitant]
     Active Substance: ATORVASTATIN
  17. BRIMONIDINE [Concomitant]
     Active Substance: BRIMONIDINE TARTRATE
     Indication: Glaucoma
  18. BRIMONIDINE [Concomitant]
     Active Substance: BRIMONIDINE TARTRATE
     Route: 065
  19. BRIMONIDINE [Concomitant]
     Active Substance: BRIMONIDINE TARTRATE
     Route: 065
  20. BRIMONIDINE [Concomitant]
     Active Substance: BRIMONIDINE TARTRATE
  21. CORTEF [Concomitant]
     Active Substance: HYDROCORTISONE
     Indication: Product used for unknown indication
  22. CORTEF [Concomitant]
     Active Substance: HYDROCORTISONE
     Route: 065
  23. CORTEF [Concomitant]
     Active Substance: HYDROCORTISONE
     Route: 065
  24. CORTEF [Concomitant]
     Active Substance: HYDROCORTISONE
  25. DESMOPRESSIN [Concomitant]
     Active Substance: DESMOPRESSIN
     Indication: Product used for unknown indication
  26. DESMOPRESSIN [Concomitant]
     Active Substance: DESMOPRESSIN
     Route: 065
  27. DESMOPRESSIN [Concomitant]
     Active Substance: DESMOPRESSIN
     Route: 065
  28. DESMOPRESSIN [Concomitant]
     Active Substance: DESMOPRESSIN
  29. HYDROCHLOROTHIAZIDE [Concomitant]
     Active Substance: HYDROCHLOROTHIAZIDE
     Indication: Hypertension
  30. HYDROCHLOROTHIAZIDE [Concomitant]
     Active Substance: HYDROCHLOROTHIAZIDE
     Route: 065
  31. HYDROCHLOROTHIAZIDE [Concomitant]
     Active Substance: HYDROCHLOROTHIAZIDE
     Route: 065
  32. HYDROCHLOROTHIAZIDE [Concomitant]
     Active Substance: HYDROCHLOROTHIAZIDE
  33. LATANOPROST [Concomitant]
     Active Substance: LATANOPROST
     Indication: Glaucoma
  34. LATANOPROST [Concomitant]
     Active Substance: LATANOPROST
     Route: 065
  35. LATANOPROST [Concomitant]
     Active Substance: LATANOPROST
     Route: 065
  36. LATANOPROST [Concomitant]
     Active Substance: LATANOPROST
  37. TAMSULOSIN [Concomitant]
     Active Substance: TAMSULOSIN
     Indication: Prostatomegaly
  38. TAMSULOSIN [Concomitant]
     Active Substance: TAMSULOSIN
     Route: 065
  39. TAMSULOSIN [Concomitant]
     Active Substance: TAMSULOSIN
     Route: 065
  40. TAMSULOSIN [Concomitant]
     Active Substance: TAMSULOSIN
  41. TESTOSTERONE [Concomitant]
     Active Substance: TESTOSTERONE
     Indication: Product used for unknown indication
  42. TESTOSTERONE [Concomitant]
     Active Substance: TESTOSTERONE
     Route: 065
  43. TESTOSTERONE [Concomitant]
     Active Substance: TESTOSTERONE
     Route: 065
  44. TESTOSTERONE [Concomitant]
     Active Substance: TESTOSTERONE
  45. TRELEGY ELLIPTA [Concomitant]
     Active Substance: FLUTICASONE FUROATE\UMECLIDINIUM BROMIDE\VILANTEROL TRIFENATATE
     Indication: Chronic obstructive pulmonary disease
  46. TRELEGY ELLIPTA [Concomitant]
     Active Substance: FLUTICASONE FUROATE\UMECLIDINIUM BROMIDE\VILANTEROL TRIFENATATE
     Route: 065
  47. TRELEGY ELLIPTA [Concomitant]
     Active Substance: FLUTICASONE FUROATE\UMECLIDINIUM BROMIDE\VILANTEROL TRIFENATATE
     Route: 065
  48. TRELEGY ELLIPTA [Concomitant]
     Active Substance: FLUTICASONE FUROATE\UMECLIDINIUM BROMIDE\VILANTEROL TRIFENATATE
  49. VENTOLIN [Concomitant]
     Active Substance: ALBUTEROL SULFATE
     Indication: Chronic obstructive pulmonary disease
  50. VENTOLIN [Concomitant]
     Active Substance: ALBUTEROL SULFATE
     Route: 065
  51. VENTOLIN [Concomitant]
     Active Substance: ALBUTEROL SULFATE
     Route: 065
  52. VENTOLIN [Concomitant]
     Active Substance: ALBUTEROL SULFATE

REACTIONS (2)
  - COVID-19 pneumonia [Recovered/Resolved]
  - Cardiac arrest [Recovered/Resolved]
